FAERS Safety Report 7673975-5 (Version None)
Quarter: 2011Q3

REPORT INFORMATION
  Report Type: 
  Country: None (occurrence: None)
  Receive Date: 20110810
  Receipt Date: 20110803
  Transmission Date: 20111222
  Serious: Yes (Other)
  Sender: FDA-Public Use
  Company Number: IT-BRISTOL-MYERS SQUIBB COMPANY-15957772

PATIENT
  Age: 71 Year
  Sex: Male

DRUGS (2)
  1. ERBITUX [Suspect]
     Indication: COLON CANCER
     Route: 042
     Dates: start: 20090706, end: 20110609
  2. FLUOROURACIL [Suspect]
     Indication: COLON CANCER
     Dosage: INJECTION
     Route: 042
     Dates: start: 20090706, end: 20110609

REACTIONS (2)
  - ATRIAL FIBRILLATION [None]
  - ANGINA PECTORIS [None]
